FAERS Safety Report 16869034 (Version 2)
Quarter: 2019Q4

REPORT INFORMATION
  Report Type: Spontaneous
  Country: DE (occurrence: DE)
  Receive Date: 20190930
  Receipt Date: 20191126
  Transmission Date: 20200122
  Serious: Yes (Hospitalization, Other)
  Sender: FDA-Public Use
  Company Number: DE-ASTRAZENECA-2019SF34697

PATIENT
  Age: 19140 Day
  Sex: Female
  Weight: 136 kg

DRUGS (9)
  1. L-THYROXIN [Concomitant]
     Active Substance: LEVOTHYROXINE SODIUM
  2. XIPAMID [Concomitant]
     Active Substance: XIPAMIDE
  3. HUMALOG [Concomitant]
     Active Substance: INSULIN LISPRO
     Indication: TYPE 1 DIABETES MELLITUS
     Dosage: 120/ UNITS / DAY
     Route: 058
  4. FORXIGA [Suspect]
     Active Substance: DAPAGLIFLOZIN
     Indication: TYPE 1 DIABETES MELLITUS
     Dosage: 5.0MG UNKNOWN
     Route: 048
     Dates: start: 20190807
  5. FORXIGA [Suspect]
     Active Substance: DAPAGLIFLOZIN
     Indication: TYPE 1 DIABETES MELLITUS
     Dosage: 5.0MG UNKNOWN
     Route: 048
     Dates: start: 20190813, end: 20190903
  6. SIMVASTATIN. [Concomitant]
     Active Substance: SIMVASTATIN
     Indication: HYPERCHOLESTEROLAEMIA
  7. INSULIN [Concomitant]
     Active Substance: INSULIN NOS
     Dates: start: 2001
  8. RAMIPRIL. [Concomitant]
     Active Substance: RAMIPRIL
  9. PANTOPRAZOL [Concomitant]
     Active Substance: PANTOPRAZOLE SODIUM

REACTIONS (10)
  - Blood glucose increased [Unknown]
  - Nausea [Unknown]
  - Body temperature increased [Unknown]
  - Vomiting [Unknown]
  - Mucosal dryness [Unknown]
  - C-reactive protein increased [Unknown]
  - Faeces soft [Unknown]
  - Ketoacidosis [Recovered/Resolved]
  - Gastroenteritis [Unknown]
  - Urine ketone body present [Unknown]

NARRATIVE: CASE EVENT DATE: 20190903
